FAERS Safety Report 5633164-2 (Version None)
Quarter: 2008Q1

REPORT INFORMATION
  Report Type: 
  Country: None (occurrence: None)
  Receive Date: 20080215
  Receipt Date: 20080130
  Transmission Date: 20080703
  Serious: Yes (Hospitalization)
  Sender: FDA-Public Use
  Company Number: 2008MP000018

PATIENT
  Age: 60 Year
  Sex: Female

DRUGS (7)
  1. PILOCARPINE HYDROCHLORIDE [Suspect]
     Indication: SJOGREN'S SYNDROME
     Dosage: 5 MG;BID;PO
     Route: 048
     Dates: start: 20071214, end: 20080112
  2. TAKEPRON [Concomitant]
  3. RHEUMATREX [Concomitant]
  4. FOLIAMIN [Concomitant]
  5. MEDROL [Concomitant]
  6. MEVALOTIN [Concomitant]
  7. LAXOBERON [Concomitant]

REACTIONS (3)
  - MALAISE [None]
  - OXYGEN SATURATION DECREASED [None]
  - VERTIGO CNS ORIGIN [None]
